FAERS Safety Report 10619176 (Version 2)
Quarter: 2015Q1

REPORT INFORMATION
  Report Type: Report from Study
  Country: JP (occurrence: None)
  Receive Date: 20141126
  Receipt Date: 20150203
  Transmission Date: 20150720
  Serious: Yes (Other)
  Sender: FDA-Public Use
  Company Number: 201411000477

PATIENT
  Age: 3 Day
  Sex: Male
  Weight: .8 kg

DRUGS (10)
  1. NITRIC OXIDE. [Suspect]
     Active Substance: NITRIC OXIDE
     Indication: PULMONARY HYPERTENSION
     Dosage: 20 PPM, CONTINUOUS
     Route: 055
     Dates: start: 20130704, end: 20130705
  2. BLOOD TRANSFUSION, AUXILIARY PRODUCTS [Concomitant]
     Active Substance: WHOLE BLOOD
  3. NOBELBAR (PHENOBARBITAL SODIUM) [Concomitant]
  4. NITRIC OXIDE. [Suspect]
     Active Substance: NITRIC OXIDE
     Dosage: 20 PPM, CONTINUOUS
     Route: 055
     Dates: start: 20130704, end: 20130705
  5. DORMICUM /00036201/ (NITRAZEPAM) [Concomitant]
  6. NITRIC OXIDE. [Suspect]
     Active Substance: NITRIC OXIDE
     Indication: RESPIRATORY FAILURE
     Dosage: 20 PPM, CONTINUOUS
     Route: 055
     Dates: start: 20130704, end: 20130705
  7. FENTANYL (FENTANYL) [Concomitant]
     Active Substance: FENTANYL
  8. INOVAN /00360702/ (DOPAMINE HYDROCHLORIDE) [Concomitant]
  9. DOBUTAMINE (DOBUTAMINE) [Concomitant]
  10. INDACIN /00003801/ (INDOMETACIN) [Concomitant]

REACTIONS (1)
  - Intraventricular haemorrhage [None]

NARRATIVE: CASE EVENT DATE: 20130707
